FAERS Safety Report 9643367 (Version 1)
Quarter: 2013Q4

REPORT INFORMATION
  Report Type: Spontaneous
  Country: US (occurrence: US)
  Receive Date: 20131024
  Receipt Date: 20131024
  Transmission Date: 20140711
  Serious: Yes (Other)
  Sender: FDA-Public Use
  Company Number: CHPA2013US015764

PATIENT
  Age: 64 Year
  Sex: Female

DRUGS (6)
  1. EXCEDRIN EXTRA STRENGTH [Suspect]
     Indication: HEADACHE
     Dosage: 1 DF, PRN
     Route: 048
  2. EXCEDRIN EXTRA STRENGTH [Suspect]
     Indication: MIGRAINE
  3. EXCEDRIN EXTRA STRENGTH [Suspect]
     Indication: OFF LABEL USE
  4. EXCEDRIN UNKNOWN [Suspect]
     Indication: MIGRAINE
     Dosage: UNK, UNK
     Route: 048
  5. EXCEDRIN UNKNOWN [Suspect]
     Indication: HEADACHE
  6. EXCEDRIN UNKNOWN [Suspect]
     Indication: OFF LABEL USE

REACTIONS (7)
  - Blindness [Not Recovered/Not Resolved]
  - Malaise [Recovered/Resolved]
  - Dyspepsia [Recovered/Resolved]
  - Migraine [Unknown]
  - Abdominal pain upper [Recovered/Resolved]
  - Underdose [Unknown]
  - Therapeutic response unexpected [Unknown]
